FAERS Safety Report 12305967 (Version 2)
Quarter: 2016Q2

REPORT INFORMATION
  Report Type: Spontaneous
  Country: DE (occurrence: DE)
  Receive Date: 20160426
  Receipt Date: 20160623
  Transmission Date: 20160815
  Serious: Yes (Hospitalization)
  Sender: FDA-Public Use
  Company Number: DE-JNJFOC-20160416597

PATIENT
  Age: 84 Year
  Sex: Male

DRUGS (15)
  1. AMLODIPINE [Concomitant]
     Active Substance: AMLODIPINE BESYLATE
     Dosage: FOR YEARS.
     Route: 048
  2. RISPERIDON [Suspect]
     Active Substance: RISPERIDONE
     Indication: PRODUCT USED FOR UNKNOWN INDICATION
     Route: 048
     Dates: start: 20150415
  3. MOVICOL [Concomitant]
     Active Substance: POLYETHYLENE GLYCOL 3350\POTASSIUM CHLORIDE\SODIUM BICARBONATE\SODIUM CHLORIDE
     Dosage: FOR 6 MONTHS.
     Route: 048
  4. HCT [Concomitant]
     Active Substance: HYDROCHLOROTHIAZIDE
     Dosage: FOR YEARS.
     Route: 048
  5. METOPROLOL SUCCINATE. [Concomitant]
     Active Substance: METOPROLOL SUCCINATE
     Dosage: FOR YEARS.
     Route: 048
  6. PIPAMPERON [Suspect]
     Active Substance: PIPAMPERONE HYDROCHLORIDE
     Indication: PRODUCT USED FOR UNKNOWN INDICATION
     Dosage: 40 - 80 MG
     Route: 048
     Dates: end: 20150414
  7. NOVALGIN [Concomitant]
     Active Substance: METAMIZOLE SODIUM
     Dosage: FOR 1 YEAR.
     Route: 048
  8. TORASEMID [Concomitant]
     Active Substance: TORSEMIDE
     Dosage: FOR YEARS.
     Route: 048
  9. PANTOPRAZOLE [Concomitant]
     Active Substance: PANTOPRAZOLE SODIUM
     Dosage: FOR YEARS.??(GASTRO INTESTINAL DRUG)
     Route: 048
  10. ASPIRIN. [Concomitant]
     Active Substance: ASPIRIN
     Dosage: FOR YEARS.
     Route: 048
  11. RIVOTRIL [Concomitant]
     Active Substance: CLONAZEPAM
     Dosage: FOR 3 YEARS.
     Route: 048
  12. VALSARTAN. [Concomitant]
     Active Substance: VALSARTAN
     Dosage: FOR YEARS.
     Route: 048
  13. RISPERIDON [Suspect]
     Active Substance: RISPERIDONE
     Indication: PRODUCT USED FOR UNKNOWN INDICATION
     Dosage: 1-1.5 MG
     Route: 048
     Dates: end: 20150414
  14. PIPAMPERON [Suspect]
     Active Substance: PIPAMPERONE HYDROCHLORIDE
     Indication: PRODUCT USED FOR UNKNOWN INDICATION
     Route: 048
     Dates: start: 20150415
  15. CIRCADIN [Suspect]
     Active Substance: MELATONIN
     Indication: SLEEP DISORDER
     Route: 048
     Dates: start: 20150430

REACTIONS (4)
  - Delirium [Unknown]
  - Salivary hypersecretion [Recovering/Resolving]
  - Sleep disorder [Unknown]
  - Aggression [Unknown]

NARRATIVE: CASE EVENT DATE: 20150415
